FAERS Safety Report 5454751-0 (Version None)
Quarter: 2007Q3

REPORT INFORMATION
  Report Type: 
  Country: None (occurrence: None)
  Receive Date: 20070917
  Receipt Date: 20060908
  Transmission Date: 20080115
  Serious: Yes (Other)
  Sender: FDA-Public Use
  Company Number: US-ASTRAZENECA-2006UW15569

PATIENT
  Age: 16242 Day
  Sex: Male
  Weight: 93.2 kg

DRUGS (7)
  1. SEROQUEL [Suspect]
     Indication: MOOD ALTERED
     Route: 048
     Dates: start: 20060728, end: 20060801
  2. ADDERALL [Concomitant]
  3. CYMBALTA [Concomitant]
     Indication: AFFECTIVE DISORDER
     Route: 048
  4. TOPAMAX [Concomitant]
     Indication: HEADACHE
     Route: 048
  5. TOPROL-XL [Concomitant]
  6. DANAZOL [Concomitant]
     Indication: IDIOPATHIC THROMBOCYTOPENIC PURPURA
     Route: 048
  7. AMBIEN [Concomitant]

REACTIONS (7)
  - DYSPNOEA [None]
  - FATIGUE [None]
  - HEADACHE [None]
  - HEART RATE INCREASED [None]
  - HYPERSENSITIVITY [None]
  - MUSCULOSKELETAL STIFFNESS [None]
  - TREMOR [None]
